FAERS Safety Report 23205825 (Version 2)
Quarter: 2023Q4

REPORT INFORMATION
  Report Type: Spontaneous
  Country: FR (occurrence: FR)
  Receive Date: 20231120
  Receipt Date: 20231218
  Transmission Date: 20240109
  Serious: Yes (Other)
  Sender: FDA-Public Use
  Company Number: None

PATIENT
  Age: 81 Year
  Sex: Female
  Weight: 64 kg

DRUGS (6)
  1. DESLORATADINE [Interacting]
     Active Substance: DESLORATADINE
     Indication: Pruritus
     Dosage: 1/DAY
     Route: 048
     Dates: start: 20230927, end: 20231017
  2. ESCITALOPRAM OXALATE [Interacting]
     Active Substance: ESCITALOPRAM OXALATE
     Indication: Mixed anxiety and depressive disorder
     Dosage: 1/DAY
     Route: 048
     Dates: end: 20231106
  3. KISQALI [Interacting]
     Active Substance: RIBOCICLIB
     Indication: Invasive ductal breast carcinoma
     Dosage: 200MG/DAY QUANTITY ENOUGH FOR 21 DAYS THEN STOP FOR 7 DAYS
     Route: 048
     Dates: start: 20230504, end: 20230705
  4. KISQALI [Interacting]
     Active Substance: RIBOCICLIB
     Dosage: 3X 200 MG/DAY QUANTITY ENOUGH FOR 21 DAYS THEN STOP FOR 7 DAY
     Route: 048
     Dates: start: 20231116
  5. KISQALI [Interacting]
     Active Substance: RIBOCICLIB
     Dosage: 3X 200 MG/DAY QUANTITY ENOUGH FOR 21 DAYS THEN STOP FOR 7 DAY
     Route: 048
     Dates: start: 20230710, end: 20231102
  6. LETROZOLE [Concomitant]
     Active Substance: LETROZOLE
     Dosage: UNK

REACTIONS (1)
  - Electrocardiogram QT prolonged [Recovered/Resolved]

NARRATIVE: CASE EVENT DATE: 20231102
